FAERS Safety Report 5850076-X (Version None)
Quarter: 2008Q3

REPORT INFORMATION
  Report Type: 
  Country: None (occurrence: None)
  Receive Date: 20080819
  Receipt Date: 20080811
  Transmission Date: 20090109
  Serious: Yes (Other)
  Sender: FDA-Public Use
  Company Number: US-AVENTIS-200718328US

PATIENT
  Sex: Male

DRUGS (44)
  1. KETEK [Suspect]
     Indication: SINUSITIS
     Route: 048
     Dates: start: 20061001
  2. KETEK [Suspect]
     Route: 048
     Dates: start: 20061211, end: 20061214
  3. KETEK [Suspect]
     Indication: RESPIRATORY TRACT INFECTION
     Route: 048
     Dates: start: 20061001
  4. KETEK [Suspect]
     Route: 048
     Dates: start: 20061211, end: 20061214
  5. ZYRTEC [Concomitant]
     Dosage: DOSE: UNK
  6. DECONGEX PLUS [Concomitant]
     Dosage: DOSE: UNK
  7. ROBITUSSIN                         /00288801/ [Concomitant]
     Indication: COUGH
     Dosage: DOSE: UNK
  8. PERCOCET [Concomitant]
     Dosage: DOSE: 5/325
  9. PERCOCET [Concomitant]
     Dosage: DOSE: 5/325MG
     Dates: start: 20070128, end: 20070227
  10. TRAMADOL HCL [Concomitant]
     Dosage: DOSE: UNK
  11. AMBIEN [Concomitant]
     Dosage: DOSE: UNK
  12. LUNESTA [Concomitant]
     Dosage: DOSE: UNK
     Dates: start: 20061006
  13. HYDROMORPHONE HCL [Concomitant]
     Dosage: DOSE: UNK
  14. DOXYCYCLINE [Concomitant]
     Dosage: DOSE: UNK
     Dates: start: 20061011
  15. PHENAZOPYRIDINE HCL TAB [Concomitant]
     Dosage: DOSE: UNK
  16. CYCLOBENZAPRINE HCL [Concomitant]
     Dosage: DOSE: UNK
  17. CARISOPRODOL [Concomitant]
     Dosage: DOSE: UNK
  18. ALPRAZOLAM [Concomitant]
     Dosage: DOSE: UNK
  19. XANAX [Concomitant]
     Dosage: DOSE: UNK
  20. DILAUDID [Concomitant]
     Dosage: DOSE: UNK
  21. CLARITHROMYCIN [Concomitant]
     Dosage: DOSE: ^ER^ 500 MG, 2 TABS ONCE DAILY WITH FOOD AND WATER
     Dates: start: 20070118
  22. ANALGESICS [Concomitant]
     Dosage: DOSE: UNK
  23. LEVAQUIN [Concomitant]
     Dosage: DOSE: 7 SAMPLES GIVEN, 1 PER DAY
     Dates: start: 20061214
  24. LEVAQUIN [Concomitant]
     Dosage: DOSE: UNK
     Dates: start: 20070118
  25. BACTROBAN [Concomitant]
     Dosage: DOSE: UNK
     Dates: start: 20070226
  26. HYDROXYZINE PAM [Concomitant]
     Dosage: DOSE: UNK
     Dates: start: 20070404
  27. DIAZEPAM [Concomitant]
     Dosage: DOSE: UNK
     Dates: start: 20070604
  28. MELOXICAM [Concomitant]
     Dosage: DOSE: UNK
     Dates: start: 20070711
  29. VERSED [Concomitant]
     Route: 042
     Dates: start: 20061122
  30. ANCEF                              /00288502/ [Concomitant]
     Dosage: DOSE: ONE GRAM
     Route: 042
     Dates: start: 20061122
  31. MORPHINE [Concomitant]
     Dosage: DOSE: UNK
     Dates: start: 20061101
  32. OXYCODONE HCL [Concomitant]
     Dosage: DOSE: UNK
     Dates: start: 20061101
  33. TYLENOL [Concomitant]
     Dates: start: 20061211
  34. RHINOCORT [Concomitant]
     Dates: start: 20061201
  35. RHINOCORT [Concomitant]
     Dosage: DOSE: ONE SQUIRT EACH NOSTRIL DAILY
     Route: 045
     Dates: start: 20070118
  36. TYLENOL (CAPLET) [Concomitant]
     Dosage: DOSE: UNK
     Dates: start: 20070118
  37. ANZEMET [Concomitant]
     Dosage: DOSE QUANTITY: 12.5
     Dates: start: 20061122
  38. DECADRON [Concomitant]
     Dates: start: 20061122
  39. FENTANYL-25 [Concomitant]
     Dates: start: 20061122
  40. PROPOFOL [Concomitant]
     Dosage: DOSE QUANTITY: 200
     Dates: start: 20061122
  41. XYLOCAINE                          /00033401/ [Concomitant]
     Dosage: DOSE QUANTITY: 100
     Dates: start: 20061122
  42. ACETAMINOPHEN [Concomitant]
     Dosage: DOSE: 650MG Q6H PRN
     Dates: start: 20070127, end: 20070226
  43. AVELOX [Concomitant]
     Route: 048
     Dates: start: 20070131, end: 20070213
  44. VANCOMYCIN [Concomitant]
     Dosage: DOSE: UNK
     Route: 042
     Dates: start: 20070129, end: 20070131

REACTIONS (7)
  - DIARRHOEA [None]
  - GAMMA-GLUTAMYLTRANSFERASE INCREASED [None]
  - GASTROENTERITIS [None]
  - HEPATIC FUNCTION ABNORMAL [None]
  - HEPATIC STEATOSIS [None]
  - SPLENOMEGALY [None]
  - STOMACH DISCOMFORT [None]
